FAERS Safety Report 6401397-3 (Version None)
Quarter: 2009Q4

REPORT INFORMATION
  Report Type: 
  Country: None (occurrence: None)
  Receive Date: 20091015
  Receipt Date: 20071001
  Transmission Date: 20100525
  Serious: Yes (Disabling)
  Sender: FDA-Public Use
  Company Number: US-ASTRAZENECA-2006UW07964

PATIENT
  Sex: Female
  Weight: 72.6 kg

DRUGS (8)
  1. SEROQUEL [Suspect]
     Dosage: 25 TO 100 MG
     Route: 048
     Dates: start: 20010417
  2. PLENDIL [Concomitant]
     Dosage: 5 TO 10 MG
     Dates: start: 20010614
  3. DITROPAN XL [Concomitant]
     Dates: start: 20010917
  4. EFFEXOR XR [Concomitant]
     Dates: start: 20010924
  5. ZOCOR [Concomitant]
     Dates: start: 20011222
  6. HYDROCHLOROTHIAZIDE [Concomitant]
     Dates: start: 20011222
  7. LEVOXYL [Concomitant]
     Dosage: 88 TO 100 MCG
     Dates: start: 20021206
  8. ATROVENT [Concomitant]
     Dates: start: 20020607

REACTIONS (1)
  - ILL-DEFINED DISORDER [None]
